FAERS Safety Report 21729105 (Version 3)
Quarter: 2024Q1

REPORT INFORMATION
  Report Type: Spontaneous
  Country: US (occurrence: US)
  Receive Date: 20221214
  Receipt Date: 20240207
  Transmission Date: 20240410
  Serious: Yes (Death, Hospitalization, Other)
  Sender: FDA-Public Use
  Company Number: US-PFIZER INC-PV202200123225

PATIENT
  Age: 79 Year
  Sex: Female

DRUGS (1)
  1. IBRANCE [Suspect]
     Active Substance: PALBOCICLIB
     Indication: Lung neoplasm malignant
     Dosage: 100 MG, DAILY
     Route: 048

REACTIONS (3)
  - Death [Fatal]
  - Pneumonia [Unknown]
  - Off label use [Unknown]

NARRATIVE: CASE EVENT DATE: 20230114
